FAERS Safety Report 17730616 (Version 3)
Quarter: 2020Q2

REPORT INFORMATION
  Report Type: Spontaneous
  Country: US (occurrence: US)
  Receive Date: 20200430
  Receipt Date: 20200616
  Transmission Date: 20200714
  Serious: Yes (Other)
  Sender: FDA-Public Use
  Company Number: US-GLAXOSMITHKLINE-US2020AMR072333

PATIENT
  Sex: Female

DRUGS (3)
  1. ZEJULA [Suspect]
     Active Substance: NIRAPARIB
     Dosage: 100 MG, QD
  2. ZEJULA [Suspect]
     Active Substance: NIRAPARIB
     Indication: OVARIAN CANCER
     Dosage: 200 MG, QD
     Dates: start: 20200406
  3. ZEJULA [Suspect]
     Active Substance: NIRAPARIB
     Dosage: 200 MG, QD
     Dates: start: 20200420

REACTIONS (8)
  - Nausea [Recovered/Resolved]
  - Skin disorder [Unknown]
  - Feeling abnormal [Unknown]
  - Neuropathy peripheral [Not Recovered/Not Resolved]
  - Sleep disorder [Recovered/Resolved]
  - Rash [Recovered/Resolved]
  - Pain [Unknown]
  - Platelet count decreased [Recovering/Resolving]
